FAERS Safety Report 5851921-4 (Version None)
Quarter: 2008Q3

REPORT INFORMATION
  Report Type: 
  Country: None (occurrence: None)
  Receive Date: 20080820
  Receipt Date: 20080808
  Transmission Date: 20090109
  Serious: Yes (Hospitalization, Other)
  Sender: FDA-Public Use
  Company Number: US-PFIZER INC-2005131127

PATIENT
  Sex: Male

DRUGS (6)
  1. NEURONTIN [Suspect]
     Indication: BIPOLAR DISORDER
  2. NEURONTIN [Suspect]
     Indication: DEPRESSION
  3. TRAZODONE HCL [Suspect]
  4. CLONAZEPAM [Concomitant]
  5. FLUVOXAMINE MALEATE [Concomitant]
  6. GABITRIL [Concomitant]

REACTIONS (5)
  - DRUG INEFFECTIVE [None]
  - INTENTIONAL OVERDOSE [None]
  - PSYCHIATRIC SYMPTOM [None]
  - SUICIDAL IDEATION [None]
  - SUICIDE ATTEMPT [None]
